FAERS Safety Report 13436668 (Version 1)
Quarter: 2017Q2

REPORT INFORMATION
  Report Type: Spontaneous
  Country: US (occurrence: US)
  Receive Date: 20170412
  Receipt Date: 20170412
  Transmission Date: 20170830
  Serious: No
  Sender: FDA-Public Use
  Company Number: None

PATIENT
  Age: 57 Year
  Sex: Female

DRUGS (2)
  1. HARVONI [Suspect]
     Active Substance: LEDIPASVIR\SOFOSBUVIR
     Indication: HEPATITIS C
  2. HARVONI [Suspect]
     Active Substance: LEDIPASVIR\SOFOSBUVIR
     Indication: HYPERTENSION

REACTIONS (6)
  - Diarrhoea [None]
  - Systemic lupus erythematosus [None]
  - Rheumatoid arthritis [None]
  - Condition aggravated [None]
  - Nausea [None]
  - Vomiting [None]

NARRATIVE: CASE EVENT DATE: 20170412
